FAERS Safety Report 17896604 (Version 2)
Quarter: 2021Q3

REPORT INFORMATION
  Report Type: Spontaneous
  Country: US (occurrence: US)
  Receive Date: 20200615
  Receipt Date: 20210719
  Transmission Date: 20211014
  Serious: Yes (Death, Other)
  Sender: FDA-Public Use
  Company Number: US-SA-2020SA152640

PATIENT
  Age: 73 Year
  Sex: Female

DRUGS (2)
  1. ZANTAC [Suspect]
     Active Substance: RANITIDINE HYDROCHLORIDE
     Indication: DYSPEPSIA
     Dosage: 150MG, QD
     Dates: end: 201907
  2. ZANTAC [Suspect]
     Active Substance: RANITIDINE HYDROCHLORIDE
     Indication: GASTROOESOPHAGEAL REFLUX DISEASE
     Dosage: 75 MG, QD
     Dates: start: 200001

REACTIONS (5)
  - Bladder cancer [Fatal]
  - Renal cancer stage III [Fatal]
  - Gastric cancer stage IV [Fatal]
  - Pancreatic carcinoma [Fatal]
  - Hepatic cancer stage III [Fatal]

NARRATIVE: CASE EVENT DATE: 201904
